FAERS Safety Report 5573045-6 (Version None)
Quarter: 2007Q4

REPORT INFORMATION
  Report Type: 
  Country: None (occurrence: None)
  Receive Date: 20071224
  Receipt Date: 20071211
  Transmission Date: 20080405
  Serious: Yes (Other)
  Sender: FDA-Public Use
  Company Number: JP-ROCHE-534989

PATIENT
  Age: 7 Year
  Sex: Male
  Weight: 31 kg

DRUGS (2)
  1. TAMIFLU [Suspect]
     Route: 048
     Dates: start: 20071110, end: 20071110
  2. CALONAL [Concomitant]
     Dosage: FORM: ORAL FORMULATION (NOT OTHERWISE SPECIFIED).
     Route: 048
     Dates: start: 20071110, end: 20071110

REACTIONS (1)
  - ABNORMAL BEHAVIOUR [None]
